FAERS Safety Report 9796445 (Version 2)
Quarter: 2014Q1

REPORT INFORMATION
  Report Type: Spontaneous
  Country: US (occurrence: US)
  Receive Date: 20140103
  Receipt Date: 20140106
  Transmission Date: 20141002
  Serious: No
  Sender: FDA-Public Use
  Company Number: US-PFIZER INC-2014001241

PATIENT
  Age: 51 Year
  Sex: Male

DRUGS (14)
  1. EFFEXOR [Suspect]
     Dosage: UNK
  2. CIPROFLOXACIN [Suspect]
     Dosage: UNK
  3. PAROXETINE [Suspect]
     Dosage: UNK
  4. ZOLPIDEM TARTRATE [Suspect]
     Dosage: UNK
  5. VENLAFAXINE HCL [Suspect]
     Dosage: UNK
  6. OXYCODONE HYDROCHLORIDE [Suspect]
     Dosage: UNK
  7. CIPRO [Suspect]
     Dosage: UNK
  8. SERZONE [Suspect]
     Dosage: UNK
  9. PAXIL [Suspect]
     Dosage: UNK
  10. AMBIEN [Suspect]
     Dosage: UNK
  11. PERCOCET [Suspect]
     Dosage: UNK
  12. PERCODAN [Suspect]
     Dosage: UNK
  13. ASPIRIN W/OXYCODONE [Suspect]
     Dosage: UNK
  14. NEFAZODONE HYDROCHLORIDE [Suspect]
     Dosage: UNK

REACTIONS (1)
  - Drug hypersensitivity [Unknown]
